FAERS Safety Report 9389103 (Version 1)
Quarter: 2013Q3

REPORT INFORMATION
  Report Type: Spontaneous
  Country: US (occurrence: US)
  Receive Date: 20130708
  Receipt Date: 20130708
  Transmission Date: 20140515
  Serious: No
  Sender: FDA-Public Use
  Company Number: US-AMGEN-USASP2013039568

PATIENT
  Age: 75 Year
  Sex: Female

DRUGS (2)
  1. ENBREL [Suspect]
     Indication: RHEUMATOID ARTHRITIS
     Dosage: 50 MG, QWK
     Dates: start: 20130503
  2. ENBREL [Suspect]

REACTIONS (4)
  - Injury associated with device [Recovered/Resolved]
  - Overdose [Recovered/Resolved]
  - Hypoaesthesia [Unknown]
  - Pain in extremity [Recovered/Resolved]
